FAERS Safety Report 10522840 (Version 5)
Quarter: 2015Q1

REPORT INFORMATION
  Report Type: Spontaneous
  Country: US (occurrence: US)
  Receive Date: 20141016
  Receipt Date: 20150225
  Transmission Date: 20150720
  Serious: Yes (Death, Other)
  Sender: FDA-Public Use
  Company Number: US-PFIZER INC-2014280095

PATIENT
  Age: 87 Year
  Sex: Female

DRUGS (1)
  1. INLYTA [Suspect]
     Active Substance: AXITINIB
     Indication: METASTATIC RENAL CELL CARCINOMA
     Dosage: UNK

REACTIONS (10)
  - Urinary tract infection [Unknown]
  - Hypophagia [Unknown]
  - Arthralgia [Unknown]
  - Disease progression [Fatal]
  - Breast pain [Unknown]
  - Back pain [Unknown]
  - General physical health deterioration [Unknown]
  - Metastatic renal cell carcinoma [Fatal]
  - Cellulitis [Unknown]
  - Asthenia [Unknown]

NARRATIVE: CASE EVENT DATE: 20141101
